FAERS Safety Report 4888257-4 (Version None)
Quarter: 2006Q1

REPORT INFORMATION
  Report Type: 
  Country: None (occurrence: None)
  Receive Date: 20060119
  Receipt Date: 20060105
  Transmission Date: 20060701
  Serious: Yes (Hospitalization)
  Sender: FDA-Public Use
  Company Number: 200610106BWH

PATIENT
  Age: 55 Year
  Sex: Female
  Weight: 56.246 kg

DRUGS (6)
  1. SORAFENIB [Suspect]
     Indication: METASTATIC RENAL CELL CARCINOMA
     Dosage: 400 MG, BID, ORAL
     Route: 048
     Dates: start: 20051215, end: 20051229
  2. LUNESTA [Concomitant]
  3. PERCOCET [Concomitant]
  4. IMODIUM [Concomitant]
  5. COMPAZINE [Concomitant]
  6. ATIVAN [Concomitant]

REACTIONS (9)
  - BLOOD POTASSIUM DECREASED [None]
  - CARDIOMEGALY [None]
  - CHEST X-RAY ABNORMAL [None]
  - DEHYDRATION [None]
  - DIARRHOEA [None]
  - HAEMOGLOBIN DECREASED [None]
  - INTERSTITIAL LUNG DISEASE [None]
  - OEDEMA [None]
  - RENAL FAILURE [None]
